FAERS Safety Report 8521834-8 (Version None)
Quarter: 2012Q3

REPORT INFORMATION
  Report Type: 
  Country: None (occurrence: None)
  Receive Date: 20120719
  Receipt Date: 20120615
  Transmission Date: 20120928
  Serious: Yes (Hospitalization)
  Sender: FDA-Public Use
  Company Number: US-BRISTOL-MYERS SQUIBB COMPANY-16538720

PATIENT

DRUGS (1)
  1. YERVOY [Suspect]
     Dosage: 1DF=200MG/40ML(5MG/ML)

REACTIONS (1)
  - ADVERSE EVENT [None]
